FAERS Safety Report 16981585 (Version 7)
Quarter: 2022Q1

REPORT INFORMATION
  Report Type: Report from Study
  Country: US (occurrence: None)
  Receive Date: 20191101
  Receipt Date: 20220321
  Transmission Date: 20220423
  Serious: Yes (Hospitalization)
  Sender: FDA-Public Use
  Company Number: US-ROCHE-2457564

PATIENT
  Age: 70 Year
  Sex: Female
  Weight: 77.1 kg

DRUGS (35)
  1. PLACEBO [Suspect]
     Active Substance: UNSPECIFIED INGREDIENT
     Indication: Ovarian cancer
     Dosage: DATE OF MOST RECENT DOSE OF BLINDED ATEZOLIZUMAB PRIOR TO SAE ONSET: 04/OCT/2019
     Route: 042
     Dates: start: 20181213
  2. BEVACIZUMAB [Suspect]
     Active Substance: BEVACIZUMAB
     Indication: Ovarian cancer
     Dosage: DATE OF MOST RECENT DOSE OF BEVACIZUMAB (1131 MG) PRIOR TO SAE ONSET: 04/OCT/2019
     Route: 042
     Dates: start: 20190102
  3. PACLITAXEL [Suspect]
     Active Substance: PACLITAXEL
     Indication: Ovarian cancer
     Dosage: DATE OF MOST RECENT DOSE OF PACLITAXEL (322 MG) PRIOR TO SAE ONSET: 28/MAR/2019
     Route: 042
     Dates: start: 20181213
  4. CARBOPLATIN [Suspect]
     Active Substance: CARBOPLATIN
     Indication: Ovarian cancer
     Dosage: AT A DOSE TO ACHIEVE A TARGET AREA UNDER THE CURVE (AUC) OF 6 MILLIGRAMS PER MILLILITER X MINUTE (MG
     Route: 042
     Dates: start: 20181213
  5. ACETAMINOPHEN [Concomitant]
     Active Substance: ACETAMINOPHEN
     Indication: Arthralgia
     Dates: start: 20181216
  6. ACETAMINOPHEN [Concomitant]
     Active Substance: ACETAMINOPHEN
     Dates: start: 20190913, end: 20190913
  7. ACETAMINOPHEN [Concomitant]
     Active Substance: ACETAMINOPHEN
     Dates: start: 20191004, end: 20191004
  8. ACETAMINOPHEN [Concomitant]
     Active Substance: ACETAMINOPHEN
     Dates: start: 20200117, end: 20200117
  9. IBUPROFEN [Concomitant]
     Active Substance: IBUPROFEN
     Indication: Arthralgia
     Dates: start: 20181216, end: 20191122
  10. MAGNESIUM OXIDE [Concomitant]
     Active Substance: MAGNESIUM OXIDE
     Indication: Blood magnesium decreased
     Dates: start: 20190208
  11. MAGNESIUM OXIDE [Concomitant]
     Active Substance: MAGNESIUM OXIDE
     Dates: start: 20190102
  12. NEURONTIN [Concomitant]
     Active Substance: GABAPENTIN
     Indication: Neuropathy peripheral
     Dates: start: 20190123
  13. TRAMADOL [Concomitant]
     Active Substance: TRAMADOL
     Indication: Cancer pain
     Dates: start: 20190913
  14. METRONIDAZOLE [Concomitant]
     Active Substance: METRONIDAZOLE
     Indication: Gastrointestinal haemorrhage
     Dates: start: 20191004, end: 20191025
  15. METRONIDAZOLE [Concomitant]
     Active Substance: METRONIDAZOLE
     Dates: start: 20191119, end: 20191122
  16. METRONIDAZOLE [Concomitant]
     Active Substance: METRONIDAZOLE
     Dates: start: 20191028, end: 20191109
  17. METRONIDAZOLE [Concomitant]
     Active Substance: METRONIDAZOLE
     Dates: start: 20191122, end: 20191204
  18. MELATONIN [Concomitant]
     Active Substance: MELATONIN
     Indication: Insomnia
     Dates: start: 20191025, end: 20191028
  19. MELATONIN [Concomitant]
     Active Substance: MELATONIN
     Dates: start: 20191120, end: 20191121
  20. GABAPENTIN [Concomitant]
     Active Substance: GABAPENTIN
     Indication: Neuropathy peripheral
     Dates: start: 20191025, end: 20191028
  21. GABAPENTIN [Concomitant]
     Active Substance: GABAPENTIN
     Dates: start: 20190123
  22. TENORMIN [Concomitant]
     Active Substance: ATENOLOL
     Indication: Blood pressure measurement
     Dates: start: 20191026, end: 20191028
  23. TENORMIN [Concomitant]
     Active Substance: ATENOLOL
     Dates: start: 20191118, end: 20191122
  24. DOCUSATE SODIUM [Concomitant]
     Active Substance: DOCUSATE SODIUM
     Indication: Gastrointestinal haemorrhage
     Dates: start: 20191118, end: 20191120
  25. FLUCONAZOLE [Concomitant]
     Active Substance: FLUCONAZOLE
     Indication: Peritonitis
     Dates: start: 20191110, end: 20191110
  26. LIDOCAINE [Concomitant]
     Active Substance: LIDOCAINE
     Indication: Gastrointestinal haemorrhage
     Dates: start: 20191119, end: 20191119
  27. LIDOCAINE [Concomitant]
     Active Substance: LIDOCAINE
     Dates: start: 20191025, end: 20191025
  28. LORAZEPAM [Concomitant]
     Active Substance: LORAZEPAM
     Indication: Insomnia
  29. NYSTATIN [Concomitant]
     Active Substance: NYSTATIN
     Indication: Stomatitis
     Dates: start: 20200103, end: 20200117
  30. NYSTATIN [Concomitant]
     Active Substance: NYSTATIN
     Dates: start: 20200228
  31. ZOFRAN [Concomitant]
     Active Substance: ONDANSETRON HYDROCHLORIDE
     Indication: Nausea
     Dates: start: 20191025, end: 20200207
  32. PROCHLORPERAZINE [Concomitant]
     Active Substance: PROCHLORPERAZINE
     Indication: Nausea
     Dates: start: 20191026, end: 20191028
  33. SENNA [Concomitant]
     Active Substance: SENNA LEAF\SENNOSIDES\SENNOSIDES A AND B
     Indication: Constipation
     Dates: start: 20191122
  34. DOCUSATE\SENNOSIDES [Concomitant]
     Active Substance: DOCUSATE\SENNOSIDES
     Indication: Constipation
     Dates: start: 20191026, end: 20191028
  35. DOCUSATE\SENNOSIDES [Concomitant]
     Active Substance: DOCUSATE\SENNOSIDES
     Dates: start: 20191120, end: 20191122

REACTIONS (1)
  - Diverticulitis [Recovered/Resolved]

NARRATIVE: CASE EVENT DATE: 20191004
